FAERS Safety Report 9511761 (Version 1)
Quarter: 2013Q3

REPORT INFORMATION
  Report Type: Spontaneous
  Country: US (occurrence: US)
  Receive Date: 20130910
  Receipt Date: 20130910
  Transmission Date: 20140515
  Serious: Yes (Other)
  Sender: FDA-Public Use
  Company Number: US-JNJFOC-20130901857

PATIENT
  Sex: 0

DRUGS (1)
  1. CLADRIBINE [Suspect]
     Indication: LANGERHANS^ CELL HISTIOCYTOSIS
     Dosage: 5 TO 3MG/M2 FOR 3-5 CONSECUTIVE DAYS, REPEATED EVERY 2-8 WEEKS
     Route: 042

REACTIONS (6)
  - Bone marrow failure [Unknown]
  - Diabetes insipidus [Unknown]
  - Hypopituitarism [Unknown]
  - Growth hormone deficiency [Unknown]
  - Cerebellar atrophy [Unknown]
  - Off label use [Unknown]
